FAERS Safety Report 6373558-3 (Version None)
Quarter: 2009Q3

REPORT INFORMATION
  Report Type: 
  Country: None (occurrence: None)
  Receive Date: 20090924
  Receipt Date: 20090224
  Transmission Date: 20100115
  Serious: No
  Sender: FDA-Public Use
  Company Number: US-ASTRAZENECA-2009UW05129

PATIENT
  Age: 11 Year
  Sex: Male

DRUGS (7)
  1. SEROQUEL [Suspect]
     Indication: BIPOLAR DISORDER
     Route: 048
     Dates: start: 20090115, end: 20090223
  2. SEROQUEL [Suspect]
     Indication: DEPRESSION
     Route: 048
     Dates: start: 20090115, end: 20090223
  3. SEROQUEL [Suspect]
     Route: 048
     Dates: start: 20090115, end: 20090223
  4. SEROQUEL [Suspect]
     Route: 048
     Dates: start: 20090115, end: 20090223
  5. CONCERTA [Concomitant]
  6. TENEX [Concomitant]
  7. METHYLPHENIDATE HCL [Concomitant]

REACTIONS (24)
  - AGGRESSION [None]
  - AGITATION [None]
  - ANGER [None]
  - ANXIETY [None]
  - CONFUSIONAL STATE [None]
  - CRYING [None]
  - DISTURBANCE IN ATTENTION [None]
  - FATIGUE [None]
  - FEAR [None]
  - FEAR OF DEATH [None]
  - FEELING ABNORMAL [None]
  - HEADACHE [None]
  - ILL-DEFINED DISORDER [None]
  - INCREASED APPETITE [None]
  - IRRITABILITY [None]
  - LOGORRHOEA [None]
  - MUSCULOSKELETAL STIFFNESS [None]
  - NAUSEA [None]
  - NEGATIVE THOUGHTS [None]
  - OPPOSITIONAL DEFIANT DISORDER [None]
  - PRURITUS [None]
  - PSYCHOTIC DISORDER [None]
  - RESTLESSNESS [None]
  - SENSORY DISTURBANCE [None]
